FAERS Safety Report 7903140-5 (Version None)
Quarter: 2011Q4

REPORT INFORMATION
  Report Type: 
  Country: None (occurrence: None)
  Receive Date: 20111107
  Receipt Date: 20111025
  Transmission Date: 20120403
  Serious: Yes (Hospitalization)
  Sender: FDA-Public Use
  Company Number: B0760323A

PATIENT
  Sex: Male

DRUGS (6)
  1. ACETAMINOPHEN [Concomitant]
  2. OFATUMUMAB  (GENERIC) (OFATUMUMAB) [Suspect]
     Indication: PRODUCT USED FOR UNKNOWN INDICATION
     Dosage: CYCLIC/INTRAVENOUS
     Route: 042
  3. HYDROCORTISONE [Concomitant]
  4. DIPHENHYDRAMINE HCL [Concomitant]
  5. ONDANSETRON HYDROCHLORIDE [Concomitant]
  6. BENDAMUSTINE (FORMULATION UNKNOWN) (BENDAMUSTINE) [Suspect]
     Indication: PRODUCT USED FOR UNKNOWN INDICATION
     Dosage: CYCLIC/INTRAVENOUS
     Route: 042

REACTIONS (9)
  - FAILURE TO THRIVE [None]
  - BLUNTED AFFECT [None]
  - HEPATIC INFECTION FUNGAL [None]
  - UPPER RESPIRATORY TRACT INFECTION [None]
  - RICHTER'S SYNDROME [None]
  - NEUROTOXICITY [None]
  - PNEUMONIA [None]
  - BACTERAEMIA [None]
  - SPLENIC INFECTION FUNGAL [None]
